FAERS Safety Report 5311460-6 (Version None)
Quarter: 2007Q2

REPORT INFORMATION
  Report Type: 
  Country: None (occurrence: None)
  Receive Date: 20070426
  Receipt Date: 20070426
  Transmission Date: 20071010
  Serious: Yes (Other)
  Sender: FDA-Public Use
  Company Number: None

PATIENT
  Age: 86 Year
  Sex: Male
  Weight: 67.6 kg

DRUGS (10)
  1. LISINOPRIL [Suspect]
  2. METOPROLOL TARTRATE [Concomitant]
  3. SERTRALINE HCL [Concomitant]
  4. GUAIFENESIN 100MG/5ML (ALC-F/SF) LIQUID [Concomitant]
  5. AZITHROMYCIN [Concomitant]
  6. ZINC OXIDE [Concomitant]
  7. NYSTATIN [Concomitant]
  8. LEVALBUTEROL TART [Concomitant]
  9. OMEPRAZOLE [Concomitant]
  10. CLOTRIMAZOLE [Concomitant]

REACTIONS (1)
  - COUGH [None]
